FAERS Safety Report 9444077 (Version 1)
Quarter: 2013Q3

REPORT INFORMATION
  Report Type: Spontaneous
  Country: GB (occurrence: GB)
  Receive Date: 20130807
  Receipt Date: 20130807
  Transmission Date: 20140515
  Serious: Yes (Other)
  Sender: FDA-Public Use
  Company Number: GB-RANBAXY-2013R1-71900

PATIENT
  Age: 39 Year
  Sex: Female

DRUGS (6)
  1. TRIAMCINOLONE [Suspect]
     Indication: PRODUCT USED FOR UNKNOWN INDICATION
     Dosage: UNK
     Route: 008
  2. RITONAVIR [Interacting]
     Indication: ANTIRETROVIRAL THERAPY
     Dosage: UNK
     Route: 065
  3. TENOFOVIR [Concomitant]
     Indication: ANTIRETROVIRAL THERAPY
     Dosage: UNK
     Route: 065
  4. EMTRICITABINE [Concomitant]
     Indication: ANTIRETROVIRAL THERAPY
     Dosage: UNK
     Route: 065
  5. DARUNAVIR [Concomitant]
     Indication: ANTIRETROVIRAL THERAPY
     Dosage: UNK
     Route: 065
  6. BUPIVACAINE [Concomitant]
     Indication: PRODUCT USED FOR UNKNOWN INDICATION
     Dosage: UNK
     Route: 008

REACTIONS (2)
  - Drug interaction [Recovered/Resolved]
  - Adrenal suppression [Recovered/Resolved]
